FAERS Safety Report 25496008 (Version 1)
Quarter: 2025Q2

REPORT INFORMATION
  Report Type: Report from Study
  Country: US (occurrence: US)
  Receive Date: 20250630
  Receipt Date: 20250630
  Transmission Date: 20250716
  Serious: Yes (Hospitalization)
  Sender: AMGEN
  Company Number: US-AMGEN-USASL2025125637

PATIENT
  Age: 60 Year
  Sex: Female

DRUGS (1)
  1. ENBREL [Suspect]
     Active Substance: ETANERCEPT
     Indication: Rheumatoid arthritis
     Dosage: UNK, QWK, EVERY FRIDAY
     Route: 065
     Dates: start: 20250620

REACTIONS (3)
  - Feeding disorder [Unknown]
  - Rash [Unknown]
  - Eye allergy [Unknown]

NARRATIVE: CASE EVENT DATE: 20250601
